FAERS Safety Report 8551473-4 (Version None)
Quarter: 2012Q3

REPORT INFORMATION
  Report Type: 
  Country: None (occurrence: None)
  Receive Date: 20120730
  Receipt Date: 20120223
  Transmission Date: 20120928
  Serious: No
  Sender: FDA-Public Use
  Company Number: US-ALLERGAN-1202547US

PATIENT
  Age: 79 Year
  Sex: Female

DRUGS (3)
  1. REFRESH DRY EYE THERAPY [Concomitant]
     Indication: EYE PRURITUS
  2. LUMIGAN [Suspect]
     Indication: GLAUCOMA
     Dosage: 2 GTT, QD
     Route: 047
     Dates: start: 20090101
  3. REFRESH DRY EYE THERAPY [Concomitant]
     Indication: DRY EYE
     Dosage: 2 GTT, PRN, 2 TO 3 TIMES PER DAY
     Route: 047
     Dates: start: 20090101

REACTIONS (4)
  - HAIR GROWTH ABNORMAL [None]
  - GROWTH OF EYELASHES [None]
  - HAIR COLOUR CHANGES [None]
  - ANGIOPATHY [None]
